FAERS Safety Report 9306825 (Version 5)
Quarter: 2014Q1

REPORT INFORMATION
  Report Type: Spontaneous
  Country: US (occurrence: None)
  Receive Date: 20130329
  Receipt Date: 20140123
  Transmission Date: 20141002
  Serious: Yes (Hospitalization, Other)
  Sender: FDA-Public Use
  Company Number: ADR-2013-00442

PATIENT
  Sex: Female

DRUGS (3)
  1. BACLOFEN INTRATHECAL [Suspect]
     Indication: PAIN
  2. DILAUDID (HYDROMORPHONE) [Suspect]
  3. MORPHINE [Suspect]

REACTIONS (34)
  - Withdrawal syndrome [None]
  - Bone pain [None]
  - Myalgia [None]
  - Paralysis [None]
  - Vomiting [None]
  - Device dislocation [None]
  - Treatment noncompliance [None]
  - Dyspnoea [None]
  - Medical device pain [None]
  - Neoplasm malignant [None]
  - Malaise [None]
  - Pain [None]
  - Performance status decreased [None]
  - Unevaluable event [None]
  - Implant site pain [None]
  - Musculoskeletal stiffness [None]
  - Eating disorder [None]
  - Conversion disorder [None]
  - Somatoform disorder neurologic [None]
  - Overdose [None]
  - Asthenia [None]
  - Aphagia [None]
  - Abasia [None]
  - Economic problem [None]
  - Lethargy [None]
  - Loss of consciousness [None]
  - Breast mass [None]
  - Breast cancer [None]
  - Alopecia [None]
  - Thyroid disorder [None]
  - Hormone level abnormal [None]
  - Tooth loss [None]
  - Dental caries [None]
  - Impaired gastric emptying [None]
